FAERS Safety Report 7373952-8 (Version None)
Quarter: 2011Q1

REPORT INFORMATION
  Report Type: 
  Country: None (occurrence: None)
  Receive Date: 20110325
  Receipt Date: 20110322
  Transmission Date: 20110831
  Serious: Yes (Other)
  Sender: FDA-Public Use
  Company Number: US-PFIZER INC-2011028991

PATIENT
  Sex: Male

DRUGS (7)
  1. GEODON [Suspect]
     Indication: PSYCHOTIC DISORDER
     Dosage: 20 MG, UNK
     Route: 048
     Dates: start: 20101231
  2. PAXIL [Concomitant]
     Indication: AGITATION
  3. BUSPAN [Concomitant]
     Indication: AGITATION
     Dosage: UNK
     Dates: start: 20101231
  4. NEURONTIN [Concomitant]
     Indication: AGITATION
  5. PAXIL [Concomitant]
     Indication: SEXUALLY INAPPROPRIATE BEHAVIOUR
     Dosage: UNK
     Dates: start: 20110105
  6. NEURONTIN [Concomitant]
     Indication: SEXUALLY INAPPROPRIATE BEHAVIOUR
     Dosage: UNK
     Dates: start: 20110212
  7. GEODON [Suspect]
     Dosage: 40 MG, 1X/DAY (SUPPER)
     Route: 048
     Dates: start: 20110105, end: 20110207

REACTIONS (1)
  - NEUROLEPTIC MALIGNANT SYNDROME [None]
